FAERS Safety Report 9757248 (Version 2)
Quarter: 2013Q4

REPORT INFORMATION
  Report Type: Spontaneous
  Country: CO (occurrence: CO)
  Receive Date: 20131213
  Receipt Date: 20131213
  Transmission Date: 20140711
  Serious: Yes (Other)
  Sender: FDA-Public Use
  Company Number: CO-ABBVIE-13P-036-1041541-00

PATIENT
  Age: 39 Year
  Sex: Female

DRUGS (3)
  1. HUMIRA [Suspect]
     Indication: MATERNAL EXPOSURE TIMING UNSPECIFIED
     Route: 058
     Dates: end: 20121231
  2. HUMIRA [Suspect]
     Dates: start: 201302
  3. FOLIC ACID [Concomitant]
     Indication: PRODUCT USED FOR UNKNOWN INDICATION

REACTIONS (1)
  - Abortion spontaneous [Unknown]
